FAERS Safety Report 7368865-1 (Version None)
Quarter: 2011Q1

REPORT INFORMATION
  Report Type: 
  Country: None (occurrence: None)
  Receive Date: 20110323
  Receipt Date: 20110309
  Transmission Date: 20110831
  Serious: Yes (Hospitalization, Other)
  Sender: FDA-Public Use
  Company Number: US-BAYER-201038146NA

PATIENT
  Sex: Female

DRUGS (6)
  1. UNCODEABLE ^UNCLASSIFIABLE^ [Concomitant]
  2. WELLBUTRIN SR [Concomitant]
  3. PREDNISONE [Concomitant]
  4. ADVAIR DISKUS 100/50 [Concomitant]
  5. YAZ [Suspect]
     Indication: PRODUCT USED FOR UNKNOWN INDICATION
     Route: 048
     Dates: start: 20091101, end: 20100413
  6. SYNTHROID [Concomitant]

REACTIONS (3)
  - PULMONARY EMBOLISM [None]
  - BILIARY DYSKINESIA [None]
  - GALLBLADDER DISORDER [None]
